FAERS Safety Report 17855718 (Version 1)
Quarter: 2020Q2

REPORT INFORMATION
  Report Type: Spontaneous
  Country: IT (occurrence: IT)
  Receive Date: 20200603
  Receipt Date: 20200603
  Transmission Date: 20200714
  Serious: Yes (Other)
  Sender: FDA-Public Use
  Company Number: IT-TEVA-2020-IT-1242906

PATIENT
  Age: 32 Year
  Sex: Male
  Weight: 90 kg

DRUGS (5)
  1. DELORAZEPAM [Suspect]
     Active Substance: DELORAZEPAM
     Dosage: 20 ML
     Route: 048
     Dates: start: 20200411
  2. SERENASE (HALOPERIDOL) [Suspect]
     Active Substance: HALOPERIDOL
     Dosage: 5 MG
     Route: 048
     Dates: start: 20200411
  3. HALOPERIDOL. [Suspect]
     Active Substance: HALOPERIDOL
     Route: 048
     Dates: start: 20200411
  4. OLANZAPINE. [Suspect]
     Active Substance: OLANZAPINE
     Dosage: 10 MG
     Route: 048
     Dates: start: 20200411
  5. SERENASE (HALOPERIDOL) [Suspect]
     Active Substance: HALOPERIDOL
     Dosage: 15 MG
     Route: 048
     Dates: start: 20200411

REACTIONS (3)
  - Sopor [Unknown]
  - Intentional self-injury [Recovered/Resolved]
  - Poisoning deliberate [Recovered/Resolved]

NARRATIVE: CASE EVENT DATE: 20200411
